FAERS Safety Report 8056283 (Version 5)
Quarter: 2013Q1

REPORT INFORMATION
  Report Type: Report from Study
  Country: JP (occurrence: JP)
  Receive Date: 20110727
  Receipt Date: 20130116
  Transmission Date: 20140127
  Serious: Yes (Death, Life-Threatening, Hospitalization, Other)
  Sender: FDA-Public Use
  Company Number: JP-BRISTOL-MYERS SQUIBB COMPANY-14584247

PATIENT
  Age: 23 Year
  Sex: Female

DRUGS (30)
  1. SPRYCEL [Suspect]
     Indication: ACUTE LYMPHOCYTIC LEUKAEMIA
     Dosage: 20FB09-30AP140MG;1MY-13AG140MG;14AG-UN140MG;140MG14AU-4SP;100MG9SE-26OC;10-18NV;19N-3JA10;4JN-16FB10
     Route: 048
     Dates: start: 20081218
  2. AMBISOME [Concomitant]
     Dosage: 100MG/D 16-18FEB2010,?5FEB09-23MAR09?23MAR09-29APR09
     Route: 042
     Dates: start: 20090205, end: 20090429
  3. MEROPEN [Concomitant]
     Dosage: .5X3 G/D 14SEP-2OCT2010;.5X3 G/D 26JAN-12FEB2010
     Route: 042
     Dates: start: 20090226, end: 20090228
  4. OMEGACIN [Concomitant]
     Dosage: 11MAR09,13MAR2009-UNKNOWN;12AUG-13AUG09;.3X3 G/D 31AUG-10SEP09 16OCT-4NOV09
     Route: 042
     Dates: start: 20090305, end: 20090813
  5. POLYETHYLENE GLYCOL [Concomitant]
     Dosage: FREEZE DRIED POLYETHYLENE GLYCOL TREATED HUMAN NORMAL IMM
     Dates: start: 20090305
  6. OMEPRAL [Concomitant]
     Indication: GASTRIC ULCER
     Dosage: INJ21FEB09-20MAY09?FROM 20MAY GIVEN ORALLY IN FORM OF TABS
     Route: 042
     Dates: start: 20090217, end: 20100128
  7. AMPHOTERICIN B [Concomitant]
     Dosage: 1DF= 100-150MG TILL 19MAR09?FROM 23MAR-29APR UNK DOSE
     Route: 042
     Dates: start: 20090205, end: 20090429
  8. FULCALIQ [Concomitant]
     Indication: FLUID REPLACEMENT
     Route: 042
     Dates: end: 20090710
  9. VANCOMYCIN [Concomitant]
     Indication: PSEUDOMEMBRANOUS COLITIS
     Route: 048
     Dates: start: 20090319, end: 20090326
  10. ADONA [Concomitant]
     Dosage: 15OCT-24NOV09;1DEC-25DEC09
     Route: 042
     Dates: start: 20091015, end: 20091225
  11. TRANSAMIN [Concomitant]
     Dosage: 15OCT-24NOV09;1DEC-25DEC09
     Route: 042
     Dates: start: 20091015, end: 20091225
  12. PRODIF [Concomitant]
     Dosage: 200MG 12-12FEB2010; 100MG 13-16FEB2010
     Route: 042
     Dates: start: 20100212, end: 20100216
  13. ETOPOSIDE [Concomitant]
     Indication: ACUTE LYMPHOCYTIC LEUKAEMIA
     Dosage: 4SEP-7SEP09;2NOV-5NOV09;22JNA2010-25JAN2010;27JAN-29JAN2010
     Route: 042
     Dates: start: 20090904, end: 20100129
  14. KYTRIL [Concomitant]
     Dosage: 4SEP-7SEP09; 2-5NOV09;22JAN-25JAN2010
     Route: 042
     Dates: start: 20090904, end: 20100129
  15. TIENAM [Concomitant]
     Dosage: 11-14SEP09; 9FEB-19FEB2010; INJ;1DF- 0.5X3 G/D
     Route: 042
     Dates: start: 20090911, end: 20100219
  16. UNASYN [Concomitant]
     Dosage: 1DF- 3X2 G/D
     Route: 042
     Dates: start: 20090911, end: 20090914
  17. HABEKACIN [Concomitant]
     Route: 042
     Dates: start: 20090914, end: 20090917
  18. MINOMYCIN [Concomitant]
     Dosage: 17SEP-02OCT2009;12FEB-18FEB2010; 1DF- 100X2 MG/D
     Route: 042
     Dates: start: 20090917, end: 20100218
  19. KEITEN [Concomitant]
     Dosage: INJ
     Route: 042
     Dates: start: 20091002, end: 20091013
  20. FOSMICIN-S [Concomitant]
     Dosage: INJ; 1DF- 2X2 G/D
     Route: 042
     Dates: start: 20091014, end: 20091016
  21. ISCOTIN [Concomitant]
     Dosage: INJ
     Route: 042
     Dates: start: 20091023, end: 20091026
  22. MAXIPIME [Concomitant]
     Dosage: 1DF- 1X3 G/D; INJ
     Route: 042
     Dates: start: 20091110, end: 20091124
  23. PENTAGIN [Concomitant]
     Dosage: INJ
     Route: 042
     Dates: start: 20091112, end: 20091112
  24. ALBUMIN 25% [Concomitant]
     Dosage: INJ
     Route: 042
     Dates: start: 20100216, end: 20100218
  25. DORMICUM [Concomitant]
     Route: 042
     Dates: start: 20100217, end: 201008
  26. CRAVIT [Concomitant]
     Indication: PROPHYLAXIS
     Dosage: FORM TABS. 300MG/DAY?3APR09-30JUL09?31JUL09-09SEP09
     Route: 048
     Dates: start: 20090403, end: 20090909
  27. ESTRADERM [Concomitant]
     Dosage: 1 SHEET PER DAY, ESTRANA: 0.72 MG BID 1APR09 TO 29AUG09
     Route: 048
     Dates: end: 20090331
  28. CLARITH [Concomitant]
     Dosage: TAB
     Route: 048
     Dates: start: 20091023, end: 20100226
  29. ESANBUTOL [Concomitant]
     Dosage: TAB
     Route: 048
     Dates: start: 20091027, end: 20100222
  30. BAKTAR [Concomitant]
     Route: 048
     Dates: start: 20091102, end: 20100222

REACTIONS (13)
  - Malignant neoplasm progression [Fatal]
  - Pleural effusion [Recovering/Resolving]
  - Pericardial effusion [Recovering/Resolving]
  - Sepsis [Recovered/Resolved]
  - White blood cell count decreased [Not Recovered/Not Resolved]
  - Neutrophil count decreased [Not Recovered/Not Resolved]
  - Platelet count decreased [Not Recovered/Not Resolved]
  - Anaemia [Not Recovered/Not Resolved]
  - Gastrointestinal haemorrhage [Recovered/Resolved]
  - Pulmonary haemorrhage [Recovering/Resolving]
  - Interstitial lung disease [Recovered/Resolved]
  - Oedema [Recovering/Resolving]
  - Headache [Not Recovered/Not Resolved]
